FAERS Safety Report 9538524 (Version 1)
Quarter: 2013Q2

REPORT INFORMATION
  Report Type: Spontaneous
  Country: US (occurrence: None)
  Receive Date: 20130507
  Receipt Date: 20130507
  Transmission Date: 20140414
  Serious: No
  Sender: FDA-Public Use
  Company Number: PHEH2103US002585

PATIENT
  Age: 79 Year
  Sex: Female

DRUGS (5)
  1. AFINITOR (RAD) UNKNOWN [Suspect]
     Indication: BREAST CANCER
     Route: 048
     Dates: start: 20130124, end: 20130128
  2. AROMASIN (EXEMESTANE) [Concomitant]
  3. ATENOLOL (ATENOLOL) [Concomitant]
  4. AMLODIPINE (AMLODIPINE) [Concomitant]
  5. LIPITOR (ATORVASTATIN CALCIUM) [Concomitant]

REACTIONS (1)
  - Headache [None]
